FAERS Safety Report 8056447-8 (Version None)
Quarter: 2012Q1

REPORT INFORMATION
  Report Type: 
  Country: None (occurrence: None)
  Receive Date: 20120119
  Receipt Date: 20120112
  Transmission Date: 20120608
  Serious: Yes (Hospitalization, Other)
  Sender: FDA-Public Use
  Company Number: JP-MERCK-1007USA02169

PATIENT
  Age: 65 Year
  Sex: Female

DRUGS (6)
  1. BEZATOL SR [Concomitant]
     Indication: HYPERLIPIDAEMIA
     Route: 048
     Dates: start: 20070131, end: 20100710
  2. JANUVIA [Suspect]
     Indication: DIABETES MELLITUS
     Route: 048
     Dates: start: 20100607, end: 20100710
  3. ADALAT [Concomitant]
     Indication: HYPERTENSION
     Route: 048
     Dates: start: 20070131, end: 20100710
  4. METFORMIN HCL [Concomitant]
     Indication: DIABETES MELLITUS
     Route: 048
     Dates: start: 20070131, end: 20100710
  5. GLYBURIDE [Concomitant]
     Indication: DIABETES MELLITUS
     Route: 048
     Dates: start: 20070131, end: 20100710
  6. LIPITOR [Concomitant]
     Indication: HYPERLIPIDAEMIA
     Route: 048
     Dates: start: 20070131, end: 20100710

REACTIONS (11)
  - VISION BLURRED [None]
  - ORAL MUCOSA EROSION [None]
  - HYPOKALAEMIA [None]
  - LIP EROSION [None]
  - METASTASES TO LIVER [None]
  - CONSTIPATION [None]
  - MALAISE [None]
  - LIP EXFOLIATION [None]
  - WHITE BLOOD CELL COUNT INCREASED [None]
  - METASTATIC NEOPLASM [None]
  - OEDEMA PERIPHERAL [None]
